FAERS Safety Report 13462441 (Version 1)
Quarter: 2017Q2

REPORT INFORMATION
  Report Type: Spontaneous
  Country: CL (occurrence: CL)
  Receive Date: 20170420
  Receipt Date: 20170420
  Transmission Date: 20170830
  Serious: Yes (Other)
  Sender: FDA-Public Use
  Company Number: CL-PFIZER INC-2017165788

PATIENT
  Age: 6 Month
  Sex: Male

DRUGS (1)
  1. CARDURA [Suspect]
     Active Substance: DOXAZOSIN MESYLATE
     Indication: URINARY TRACT DISORDER
     Dosage: 0.5 MG, (HALF TABLET OF 1 MG)
     Dates: start: 20170410

REACTIONS (3)
  - Haematochezia [Unknown]
  - Hypersensitivity [Unknown]
  - Product use in unapproved indication [Unknown]
